FAERS Safety Report 4931515-5 (Version None)
Quarter: 2006Q1

REPORT INFORMATION
  Report Type: 
  Country: None (occurrence: None)
  Receive Date: 20060303
  Receipt Date: 20060224
  Transmission Date: 20060701
  Serious: Yes (Other)
  Sender: FDA-Public Use
  Company Number: PHNU2006DE01108

PATIENT
  Age: 53 Year
  Sex: Male

DRUGS (2)
  1. AREDIA [Suspect]
     Dosage: 90 MG, QMO
     Dates: start: 20000322, end: 20030429
  2. ZOMETA [Suspect]
     Dosage: 4 MG, QMO
     Dates: start: 20030603, end: 20050627

REACTIONS (2)
  - JAW DISORDER [None]
  - OSTEONECROSIS [None]
